FAERS Safety Report 5517155-8 (Version None)
Quarter: 2007Q4

REPORT INFORMATION
  Report Type: 
  Country: None (occurrence: None)
  Receive Date: 20071114
  Receipt Date: 20071107
  Transmission Date: 20080405
  Serious: Yes (Hospitalization)
  Sender: FDA-Public Use
  Company Number: B0495304A

PATIENT
  Age: 87 Year
  Sex: Female

DRUGS (7)
  1. LANOXIN [Suspect]
     Indication: CARDIAC FAILURE
     Dosage: 250MCG PER DAY
     Route: 048
     Dates: start: 20070101, end: 20070820
  2. PRITOR [Concomitant]
     Indication: HYPERTENSION
     Dosage: 20MG PER DAY
     Route: 048
     Dates: start: 20070101, end: 20070820
  3. LASIX [Concomitant]
     Dosage: 50MG PER DAY
     Route: 048
     Dates: start: 20070101, end: 20070820
  4. FOLINA [Concomitant]
     Dosage: 5MG PER DAY
     Route: 048
     Dates: start: 20070101, end: 20070820
  5. GLYCERYL TRINITRATE [Concomitant]
     Indication: ANGINA PECTORIS
     Dosage: 5MG PER DAY
     Route: 062
     Dates: start: 20070101, end: 20070820
  6. SINEMET [Concomitant]
     Indication: PARKINSON'S DISEASE
     Dosage: 25MG PER DAY
     Route: 048
     Dates: start: 20070101, end: 20070820
  7. DIURESIX [Concomitant]
     Dosage: 10MG PER DAY
     Route: 048
     Dates: start: 20070101, end: 20070820

REACTIONS (2)
  - BRADYARRHYTHMIA [None]
  - DYSPNOEA EXERTIONAL [None]
